FAERS Safety Report 15808062 (Version 2)
Quarter: 2019Q1

REPORT INFORMATION
  Report Type: Spontaneous
  Country: US (occurrence: US)
  Receive Date: 20190110
  Receipt Date: 20190307
  Transmission Date: 20190417
  Serious: No
  Sender: FDA-Public Use
  Company Number: US-ELI_LILLY_AND_COMPANY-US201901003950

PATIENT
  Age: 71 Year
  Sex: Female

DRUGS (6)
  1. HUMULIN N [Suspect]
     Active Substance: INSULIN HUMAN
     Dosage: 16 U, DAILY
     Route: 058
  2. HUMULIN N [Suspect]
     Active Substance: INSULIN HUMAN
     Dosage: 13 U, DAILY
     Route: 058
     Dates: start: 2013
  3. HUMULIN N [Suspect]
     Active Substance: INSULIN HUMAN
     Indication: TYPE 2 DIABETES MELLITUS
     Dosage: 13 U, DAILY
     Route: 058
     Dates: start: 2013
  4. HUMULIN N [Suspect]
     Active Substance: INSULIN HUMAN
     Dosage: 16 U, DAILY
     Route: 058
  5. HUMULIN N [Suspect]
     Active Substance: INSULIN HUMAN
     Dosage: 16 U, DAILY
     Route: 058
  6. HUMULIN N [Suspect]
     Active Substance: INSULIN HUMAN
     Dosage: 13 U, DAILY
     Route: 058
     Dates: start: 2013

REACTIONS (2)
  - Blood glucose increased [Recovered/Resolved]
  - Hunger [Recovered/Resolved]
